FAERS Safety Report 24973073 (Version 2)
Quarter: 2025Q1

REPORT INFORMATION
  Report Type: Report from Study
  Country: JP (occurrence: JP)
  Receive Date: 20250216
  Receipt Date: 20250318
  Transmission Date: 20250408
  Serious: Yes (Death)
  Sender: ROCHE
  Company Number: JP-CHUGAI-2025004331

PATIENT
  Age: 8 Decade
  Sex: Female

DRUGS (3)
  1. ENSPRYNG [Suspect]
     Active Substance: SATRALIZUMAB-MWGE
     Indication: Neuromyelitis optica spectrum disorder
     Dosage: UNK
     Route: 058
     Dates: start: 20210303, end: 20210330
  2. ENSPRYNG [Suspect]
     Active Substance: SATRALIZUMAB-MWGE
     Dosage: 26-NOV-2024: MOST RECENT DOSE
     Route: 058
     Dates: start: 20210428
  3. PREDNISOLONE [Suspect]
     Active Substance: PREDNISOLONE
     Indication: Product used for unknown indication
     Dosage: 30-MAR-2021: MOST RECENT DOSE
     Route: 048
     Dates: start: 20010303

REACTIONS (2)
  - Interstitial lung disease [Fatal]
  - Pneumothorax [Fatal]
